FAERS Safety Report 21603730 (Version 3)
Quarter: 2022Q4

REPORT INFORMATION
  Report Type: Report from Study
  Country: MX (occurrence: MX)
  Receive Date: 20221116
  Receipt Date: 20221217
  Transmission Date: 20230113
  Serious: Yes (Other)
  Sender: FDA-Public Use
  Company Number: MX-002147023-NVSC2021MX162999

PATIENT
  Age: 18 Year
  Sex: Female
  Weight: 63 kg

DRUGS (5)
  1. GILENYA [Suspect]
     Active Substance: FINGOLIMOD HYDROCHLORIDE
     Indication: Multiple sclerosis
     Dosage: 1 DOSAGE FORM, QD
     Route: 048
     Dates: start: 20210619
  2. GILENYA [Suspect]
     Active Substance: FINGOLIMOD HYDROCHLORIDE
     Dosage: 0.5 MG, QD
     Route: 048
  3. GILENYA [Suspect]
     Active Substance: FINGOLIMOD HYDROCHLORIDE
     Dosage: 0.5 MG, QD
     Route: 048
     Dates: start: 202107
  4. METHYLPREDNISOLONE [Suspect]
     Active Substance: METHYLPREDNISOLONE
     Indication: Multiple sclerosis relapse
     Dosage: UNK, 5 BOLUSES
     Route: 065
  5. CABERGOLINE [Concomitant]
     Active Substance: CABERGOLINE
     Indication: Pituitary tumour benign
     Dosage: 0.5 DOSAGE FORM, QW
     Route: 048
     Dates: start: 202004

REACTIONS (34)
  - Musculoskeletal stiffness [Unknown]
  - Road traffic accident [Not Recovered/Not Resolved]
  - Neuropathy peripheral [Recovering/Resolving]
  - Pain in extremity [Unknown]
  - Pain [Unknown]
  - Tic [Unknown]
  - Muscular weakness [Recovered/Resolved]
  - Multiple sclerosis relapse [Recovered/Resolved]
  - Fatigue [Recovered/Resolved]
  - Immunodeficiency [Recovered/Resolved]
  - Tremor [Recovered/Resolved]
  - Paraesthesia [Recovered/Resolved]
  - Menstrual disorder [Not Recovered/Not Resolved]
  - Headache [Recovered/Resolved]
  - Illness [Unknown]
  - Taste disorder [Unknown]
  - Increased appetite [Unknown]
  - Stress [Unknown]
  - Ligament sprain [Unknown]
  - Sleep disorder [Recovering/Resolving]
  - Headache [Recovering/Resolving]
  - Dizziness [Unknown]
  - Back pain [Unknown]
  - Arthralgia [Unknown]
  - Urinary tract infection [Recovered/Resolved]
  - COVID-19 [Recovered/Resolved]
  - Pyrexia [Recovered/Resolved]
  - Cough [Unknown]
  - Photophobia [Recovered/Resolved]
  - Hypoaesthesia [Recovered/Resolved]
  - Dysphonia [Unknown]
  - Vision blurred [Recovered/Resolved]
  - Incontinence [Unknown]
  - Heavy menstrual bleeding [Not Recovered/Not Resolved]

NARRATIVE: CASE EVENT DATE: 20210601
